FAERS Safety Report 18038658 (Version 1)
Quarter: 2020Q3

REPORT INFORMATION
  Report Type: Spontaneous
  Country: US (occurrence: US)
  Receive Date: 20200717
  Receipt Date: 20200717
  Transmission Date: 20201103
  Serious: No
  Sender: FDA-Public Use
  Company Number: US-PFIZER INC-2020273351

PATIENT
  Sex: Female

DRUGS (1)
  1. GLIPIZIDE. [Suspect]
     Active Substance: GLIPIZIDE
     Dosage: UNK (CUT IN HALF, TO MAKE HER 2.5 MG DOSE)

REACTIONS (3)
  - Increased appetite [Unknown]
  - Weight increased [Unknown]
  - Product prescribing error [Unknown]
